FAERS Safety Report 9113800 (Version 1)
Quarter: 2013Q1

REPORT INFORMATION
  Report Type: Spontaneous
  Country: US (occurrence: US)
  Receive Date: 20130208
  Receipt Date: 20130208
  Transmission Date: 20140127
  Serious: Yes (Hospitalization)
  Sender: FDA-Public Use
  Company Number: US-BRACCO-009158

PATIENT
  Age: 68 Year
  Sex: Female

DRUGS (2)
  1. ISOVUE 300 [Suspect]
     Indication: COMPUTERISED TOMOGRAM HEAD
     Dates: start: 20130110, end: 20130110
  2. HYPNOTICS AND SEDATIVES [Concomitant]
     Dates: start: 20130110, end: 20130110

REACTIONS (2)
  - Brain oedema [Recovered/Resolved]
  - Aphasia [Recovered/Resolved]
